FAERS Safety Report 21872093 (Version 1)
Quarter: 2023Q1

REPORT INFORMATION
  Report Type: Spontaneous
  Country: US (occurrence: None)
  Receive Date: 20230114
  Receipt Date: 20230114
  Transmission Date: 20230417
  Serious: Yes (Other)
  Sender: FDA-Public Use
  Company Number: None

PATIENT
  Age: 67 Year
  Sex: Female

DRUGS (1)
  1. CLINDAMYCIN HYDROCHLORIDE [Suspect]
     Active Substance: CLINDAMYCIN HYDROCHLORIDE
     Indication: Removal of foreign body
     Dosage: OTHER QUANTITY : 45 CAPSULE(S);?FREQUENCY : 3 TIMES A DAY;?
     Route: 048
     Dates: start: 20221222, end: 20221227

REACTIONS (3)
  - Diverticulitis [None]
  - Illness [None]
  - Clostridium difficile infection [None]

NARRATIVE: CASE EVENT DATE: 20221221
